FAERS Safety Report 25632267 (Version 1)
Quarter: 2025Q3

REPORT INFORMATION
  Report Type: Spontaneous
  Country: EU (occurrence: EU)
  Receive Date: 20250801
  Receipt Date: 20250801
  Transmission Date: 20251021
  Serious: Yes (Death, Hospitalization, Other)
  Sender: Kenvue
  Company Number: None

PATIENT

DRUGS (42)
  1. IMODIUM [Suspect]
     Active Substance: LOPERAMIDE HYDROCHLORIDE
     Indication: Gastroenteritis viral
     Dosage: 4 DOSAGE FORM, ONCE A DAY
     Route: 048
     Dates: start: 19980405, end: 19980406
  2. ZYRTEC [Concomitant]
     Active Substance: CETIRIZINE HYDROCHLORIDE
     Indication: Rash macular
     Route: 048
     Dates: start: 19980419, end: 19980426
  3. CARBAMAZEPINE [Concomitant]
     Active Substance: CARBAMAZEPINE
     Indication: Prophylaxis
     Route: 048
     Dates: start: 19980312, end: 19980323
  4. POTASSIUM CHLORIDE [Concomitant]
     Active Substance: POTASSIUM CHLORIDE
     Indication: Hypokalaemia
     Route: 048
     Dates: start: 19980324, end: 19980411
  5. Paractol [Concomitant]
     Indication: Gastrointestinal disorder
     Route: 048
     Dates: start: 19980402, end: 19980402
  6. FUROSEMIDE\SPIRONOLACTONE [Suspect]
     Active Substance: FUROSEMIDE\SPIRONOLACTONE
     Indication: Oedema
     Route: 048
     Dates: start: 19980323, end: 19980405
  7. NOVALGIN (METAMIZOLE SODIUM) [Suspect]
     Active Substance: METAMIZOLE SODIUM
     Indication: Pain
     Route: 048
     Dates: start: 19980403, end: 19980403
  8. Linola-fett [Concomitant]
     Indication: Dry skin
     Route: 061
     Dates: start: 19980323, end: 19980426
  9. Linola-fett [Concomitant]
     Indication: Dry skin
     Route: 061
     Dates: start: 19980323, end: 19980426
  10. Linola-fett [Concomitant]
     Indication: Dry skin
     Route: 061
     Dates: start: 19980323, end: 19980426
  11. LASIX [Concomitant]
     Active Substance: FUROSEMIDE
     Indication: Oedema
     Route: 042
     Dates: start: 19980323, end: 19980327
  12. KONAKION [Suspect]
     Active Substance: PHYTONADIONE
     Indication: Vitamin supplementation
     Route: 048
     Dates: start: 19980409, end: 19980426
  13. KONAKION [Suspect]
     Active Substance: PHYTONADIONE
     Indication: Vitamin K deficiency
     Route: 048
     Dates: start: 19980409, end: 19980426
  14. Kalinor [Concomitant]
     Indication: Hypokalaemia
     Route: 048
     Dates: start: 19980323, end: 19980330
  15. FOLIC ACID [Concomitant]
     Active Substance: FOLIC ACID
     Indication: Folate deficiency
     Route: 048
     Dates: start: 19980323, end: 19980426
  16. DIBUCAINE\POLICRESULEN [Concomitant]
     Active Substance: DIBUCAINE\POLICRESULEN
     Indication: Haemorrhoids
     Route: 054
     Dates: start: 19980323, end: 19980426
  17. DIFLUCAN [Concomitant]
     Active Substance: FLUCONAZOLE
     Indication: Candida infection
     Route: 048
     Dates: start: 19980417, end: 19980426
  18. Cytobion [Concomitant]
     Indication: Vitamin supplementation
     Route: 058
     Dates: start: 19980323, end: 19980417
  19. Cytobion [Concomitant]
     Route: 058
     Dates: start: 19980323, end: 19980417
  20. Clont [Concomitant]
     Indication: Pyrexia
     Route: 048
     Dates: start: 19980323, end: 19980330
  21. Betabion [Concomitant]
     Indication: Vitamin supplementation
     Route: 042
     Dates: start: 19980323, end: 19980426
  22. ACETAMINOPHEN [Concomitant]
     Active Substance: ACETAMINOPHEN
     Indication: Pyrexia
     Route: 054
     Dates: start: 19980416, end: 19980419
  23. Atosil [Concomitant]
     Indication: Agitation
     Route: 048
     Dates: start: 19980417, end: 19980418
  24. AQUAPHOR [Concomitant]
     Active Substance: PETROLATUM
     Indication: Oedema
     Route: 048
     Dates: start: 19980323, end: 19980407
  25. AQUAPHOR [Concomitant]
     Active Substance: PETROLATUM
     Indication: Oedema
     Route: 048
     Dates: start: 19980323, end: 19980407
  26. AQUAPHOR [Concomitant]
     Active Substance: PETROLATUM
     Indication: Oedema
     Route: 048
     Dates: start: 19980323, end: 19980407
  27. AQUAPHOR [Concomitant]
     Active Substance: PETROLATUM
     Indication: Oedema
     Route: 048
     Dates: start: 19980323, end: 19980407
  28. OMEPRAZOLE [Concomitant]
     Active Substance: OMEPRAZOLE
     Indication: Gastric ulcer
     Route: 048
     Dates: start: 19980323, end: 19980426
  29. ACETYLCYSTEINE [Concomitant]
     Active Substance: ACETYLCYSTEINE
     Indication: Unevaluable event
     Route: 048
     Dates: start: 19980323, end: 19980426
  30. AMPHO-MORONAL [Suspect]
     Active Substance: AMPHOTERICIN B
     Indication: Oesophageal candidiasis
     Dosage: 6 DOSAGE FORM, ONCE A DAY, AMPHO-MORONAL SUSPENSION
     Route: 048
     Dates: start: 19980406, end: 19980426
  31. CLOTRIMAZOLE [Suspect]
     Active Substance: CLOTRIMAZOLE
     Indication: Vulvovaginal candidiasis
     Route: 061
     Dates: start: 19980415, end: 19980426
  32. CIPROFLOXACIN HYDROCHLORIDE [Suspect]
     Active Substance: CIPROFLOXACIN HYDROCHLORIDE
     Indication: Pyrexia
     Dosage: 2 DOSAGE FORM, ONCE A DAY, (CIPROFLOXACIN OR CIPROFLOXACIN HYDROCHLORIDE OR CIPROFLOXACIN LACTATE)
     Route: 048
     Dates: start: 19980404, end: 19980410
  33. CIPROFLOXACIN HYDROCHLORIDE [Suspect]
     Active Substance: CIPROFLOXACIN HYDROCHLORIDE
     Dosage: 2 DOSAGE FORM, ONCE A DAY
     Route: 048
     Dates: start: 19980417, end: 19980426
  34. DIAZEPAM [Suspect]
     Active Substance: DIAZEPAM
     Indication: Oesophagogastroscopy
     Dosage: 10 MILLIGRAM, ONCE A DAY
     Route: 048
     Dates: start: 19980415, end: 19980415
  35. LASIX [Suspect]
     Active Substance: FUROSEMIDE
     Indication: Oedema
     Dosage: 40 MILLIGRAM, ONCE A DAY
     Route: 048
     Dates: start: 19980406, end: 19980426
  36. NOVALGIN (METAMIZOLE SODIUM) [Suspect]
     Active Substance: METAMIZOLE SODIUM
     Indication: Pain
     Route: 048
     Dates: start: 19980403, end: 19980403
  37. FUROSEMIDE\SPIRONOLACTONE [Suspect]
     Active Substance: FUROSEMIDE\SPIRONOLACTONE
     Indication: Oedema
     Dosage: UNK UNK, ONCE A DAY, OSYROL 100-LASIX
     Route: 048
     Dates: start: 19980323, end: 19980405
  38. OXAZEPAM [Suspect]
     Active Substance: OXAZEPAM
     Indication: Sleep disorder
     Route: 048
     Dates: start: 19980330, end: 19980416
  39. CISAPRIDE [Suspect]
     Active Substance: CISAPRIDE
     Indication: Gastrointestinal disorder
     Dosage: 15 MILLILITER, ONCE A DAY
     Route: 048
     Dates: start: 19980415, end: 19980416
  40. SODIUM POLYSTYRENE SULFONATE [Suspect]
     Active Substance: SODIUM POLYSTYRENE SULFONATE
     Indication: Hyperkalaemia
     Dosage: 15 GRAM, ONCE A DAY
     Route: 048
     Dates: start: 19980406, end: 19980406
  41. TRAMADOL [Suspect]
     Active Substance: TRAMADOL
     Indication: Pain
     Dosage: 20 DROP, ONCE A DAY ([DRP] (DROP (1/12 MILLILITRE)) TRAMAL TROFEN
     Route: 048
     Dates: start: 19980409, end: 19980417
  42. DIMENHYDRINATE [Suspect]
     Active Substance: DIMENHYDRINATE
     Indication: Nausea
     Dosage: 1 DOSAGE FORM, ONCE A DAY (VOMEX A SUPPOSITORIEN)
     Route: 054
     Dates: start: 19980414, end: 19980414

REACTIONS (6)
  - Vulvovaginal candidiasis [Unknown]
  - Toxic epidermal necrolysis [Fatal]
  - Pyrexia [Unknown]
  - Conjunctivitis [Unknown]
  - Mucosa vesicle [Unknown]
  - Mouth ulceration [Unknown]

NARRATIVE: CASE EVENT DATE: 19980416
